FAERS Safety Report 7238309-9 (Version None)
Quarter: 2011Q1

REPORT INFORMATION
  Report Type: 
  Country: None (occurrence: None)
  Receive Date: 20110121
  Receipt Date: 20110113
  Transmission Date: 20110831
  Serious: Yes (Hospitalization, Other)
  Sender: FDA-Public Use
  Company Number: US-B.I. PHARMACEUTICALS,INC./RIDGEFIELD-2010-BP-05842BP

PATIENT
  Sex: Female

DRUGS (2)
  1. MOBIC [Suspect]
  2. MOBIC [Suspect]
     Indication: ARTHRALGIA
     Dosage: 15 MG
     Route: 048
     Dates: start: 20090901, end: 20091201

REACTIONS (18)
  - EROSIVE DUODENITIS [None]
  - LOWER GASTROINTESTINAL HAEMORRHAGE [None]
  - ANAEMIA [None]
  - DIVERTICULUM INTESTINAL [None]
  - ANXIETY [None]
  - FAECES DISCOLOURED [None]
  - SEPSIS [None]
  - ABDOMINAL DISCOMFORT [None]
  - GASTRIC HAEMORRHAGE [None]
  - PALPITATIONS [None]
  - FATIGUE [None]
  - GASTRITIS EROSIVE [None]
  - HIATUS HERNIA [None]
  - HAEMATOCHEZIA [None]
  - SUPRAVENTRICULAR TACHYCARDIA [None]
  - INCISION SITE PAIN [None]
  - DIZZINESS [None]
  - HYPERTENSION [None]
